FAERS Safety Report 15758220 (Version 1)
Quarter: 2018Q4

REPORT INFORMATION
  Report Type: Spontaneous
  Country: AU (occurrence: AU)
  Receive Date: 20181225
  Receipt Date: 20181225
  Transmission Date: 20190205
  Serious: Yes (Other)
  Sender: FDA-Public Use
  Company Number: AU-AMGEN-AUSSP2018182405

PATIENT
  Age: 78 Year
  Sex: Female

DRUGS (4)
  1. PROLIA [Suspect]
     Active Substance: DENOSUMAB
     Indication: OSTEOPOROSIS
     Dosage: UNK
     Route: 058
     Dates: start: 20171110, end: 20180508
  2. CITALOPRAM [Concomitant]
     Active Substance: CITALOPRAM HYDROBROMIDE
     Dosage: UNK
  3. DOXYCYCLINE. [Concomitant]
     Active Substance: DOXYCYCLINE
     Dosage: UNK
  4. MELOXICAM. [Concomitant]
     Active Substance: MELOXICAM
     Dosage: UNK

REACTIONS (10)
  - Dyspnoea [Unknown]
  - Urinary tract infection [Unknown]
  - Arthralgia [Unknown]
  - Rash [Unknown]
  - Palpitations [Unknown]
  - Vitamin D deficiency [Unknown]
  - Pruritus [Recovered/Resolved]
  - Myalgia [Unknown]
  - Weight decreased [Unknown]
  - Loose tooth [Unknown]

NARRATIVE: CASE EVENT DATE: 20171110
